FAERS Safety Report 17886179 (Version 1)
Quarter: 2020Q2

REPORT INFORMATION
  Report Type: Spontaneous
  Country: CA (occurrence: CA)
  Receive Date: 20200611
  Receipt Date: 20200611
  Transmission Date: 20200714
  Serious: Yes (Other)
  Sender: FDA-Public Use
  Company Number: CA-PFIZER INC-2019410460

PATIENT
  Age: 66 Year
  Sex: Female

DRUGS (8)
  1. CORTISONE [Concomitant]
     Active Substance: CORTISONE
     Dosage: UNK
  2. PREDNISONE. [Concomitant]
     Active Substance: PREDNISONE
     Dosage: 20 MG, 1X/DAY (2 TABLETS OD)
     Route: 048
  3. METHOTREXATE SODIUM. [Suspect]
     Active Substance: METHOTREXATE SODIUM
     Indication: RHEUMATOID ARTHRITIS
     Dosage: 20 MG, WEEKLY
     Route: 058
  4. LEUCOVORIN. [Concomitant]
     Active Substance: LEUCOVORIN
     Dosage: UNK
     Route: 048
     Dates: start: 2019
  5. XELJANZ [Concomitant]
     Active Substance: TOFACITINIB CITRATE
     Indication: RHEUMATOID ARTHRITIS
     Dosage: 5 MG, 2X/DAY
     Route: 048
     Dates: start: 2019
  6. FOLIC ACID. [Concomitant]
     Active Substance: FOLIC ACID
     Dosage: 5 MG, (3 DAYS A WEEK FOLLOWING METHOTREXATE)
     Route: 048
  7. XELJANZ XR [Concomitant]
     Active Substance: TOFACITINIB CITRATE
     Indication: RHEUMATOID ARTHRITIS
     Dosage: 11 MG, 1X/DAY
     Route: 048
  8. EFFEXOR [Concomitant]
     Active Substance: VENLAFAXINE HYDROCHLORIDE
     Dosage: UNK

REACTIONS (18)
  - Drug ineffective [Unknown]
  - Off label use [Unknown]
  - Balance disorder [Unknown]
  - Speech disorder [Unknown]
  - Amnesia [Not Recovered/Not Resolved]
  - Arthralgia [Recovering/Resolving]
  - Headache [Unknown]
  - Pollakiuria [Unknown]
  - Memory impairment [Unknown]
  - Alopecia [Unknown]
  - Contusion [Unknown]
  - Insomnia [Unknown]
  - Fall [Unknown]
  - Loss of consciousness [Unknown]
  - Nausea [Unknown]
  - Panic attack [Unknown]
  - Product use issue [Unknown]
  - Concussion [Unknown]
